FAERS Safety Report 7950485 (Version 3)
Quarter: 2013Q1

REPORT INFORMATION
  Report Type: Spontaneous
  Country: US (occurrence: US)
  Receive Date: 20110518
  Receipt Date: 20130218
  Transmission Date: 20140127
  Serious: Yes (Other)
  Sender: FDA-Public Use
  Company Number: US-ASTRAZENECA-2011SE27332

PATIENT
  Age: 82 Year
  Sex: Male

DRUGS (3)
  1. CRESTOR [Suspect]
     Indication: BLOOD CHOLESTEROL ABNORMAL
     Route: 048
     Dates: start: 2009
  2. COUMADIN [Concomitant]
  3. GLUCOSAMINE AND CHONDROITIN [Concomitant]

REACTIONS (5)
  - Atrioventricular block complete [Unknown]
  - Cellulitis [Recovered/Resolved]
  - Malaise [Unknown]
  - Dermatitis [Unknown]
  - Angina pectoris [Unknown]
